FAERS Safety Report 9863535 (Version 1)
Quarter: 2014Q1

REPORT INFORMATION
  Report Type: Report from Study
  Country: US (occurrence: US)
  Receive Date: 20140203
  Receipt Date: 20140203
  Transmission Date: 20141002
  Serious: Yes (Other)
  Sender: FDA-Public Use
  Company Number: US-US-EMD SERONO, INC.-7266665

PATIENT
  Sex: Female

DRUGS (3)
  1. REBIF [Suspect]
     Indication: MULTIPLE SCLEROSIS
     Route: 058
     Dates: start: 20061107, end: 201311
  2. REBIF [Suspect]
     Route: 058
     Dates: start: 20140124
  3. ADVIL                              /00109201/ [Concomitant]
     Indication: PREMEDICATION

REACTIONS (6)
  - Tendonitis [Unknown]
  - Joint swelling [Unknown]
  - Vitamin D decreased [Unknown]
  - Arthralgia [Unknown]
  - Injection site bruising [Unknown]
  - Injection site extravasation [Unknown]
